FAERS Safety Report 21609712 (Version 2)
Quarter: 2022Q4

REPORT INFORMATION
  Report Type: Report from Study
  Country: JP (occurrence: JP)
  Receive Date: 20221117
  Receipt Date: 20221229
  Transmission Date: 20230113
  Serious: Yes (Hospitalization)
  Sender: FDA-Public Use
  Company Number: JP-ABBVIE-4197054

PATIENT
  Age: 75 Year
  Sex: Female
  Weight: 46.2 kg

DRUGS (20)
  1. VENETOCLAX [Suspect]
     Active Substance: VENETOCLAX
     Indication: Myelodysplastic syndrome
     Dosage: DAYS 1 - 14 OF EACH 28-DAY CYCLE
     Route: 048
     Dates: start: 20220311, end: 20221027
  2. AZACITIDINE [Suspect]
     Active Substance: AZACITIDINE
     Indication: Myelodysplastic syndrome
     Dosage: 7 DAYS WITHIN THE FIRST 9 CALENDAR DAYS OF EACH 28-DAY CYCLE
     Route: 058
     Dates: start: 20220311, end: 20221020
  3. ATORVASTATIN [Concomitant]
     Active Substance: ATORVASTATIN
     Indication: Hyperlipidaemia
     Route: 048
     Dates: start: 2012
  4. KETOPROFEN [Concomitant]
     Active Substance: KETOPROFEN
     Indication: Periarthritis
     Dosage: TIME INTERVAL: AS NECESSARY: DOSAGE FORM: TAPE
     Route: 062
     Dates: start: 2012
  5. SODIUM HYALURONATE [Concomitant]
     Active Substance: HYALURONATE SODIUM
     Indication: Dry eye
     Dosage: PROPER QUANTITY (DROPS)?DOSAGE FORM: OPHTHALMIC SOLUTION
     Route: 047
     Dates: start: 2004
  6. HEPARINOID [Concomitant]
     Indication: Dry skin prophylaxis
     Dosage: TIME INTERVAL: AS NECESSARY: PROPER QUANTITY APPLICATION??DOSAGE FORM: LOTION
     Route: 061
     Dates: start: 2020
  7. BISOPROLOL FUMARATE [Concomitant]
     Active Substance: BISOPROLOL FUMARATE
     Indication: Hypertension
     Route: 048
     Dates: start: 2004
  8. KETOPROFEN [Concomitant]
     Active Substance: KETOPROFEN
     Indication: Periarthritis
     Dosage: PROPER QUANTITY (UNIT: MG)?DOSAGE FORM: TAPE
     Route: 062
     Dates: start: 2012
  9. FLUCONAZOLE [Concomitant]
     Active Substance: FLUCONAZOLE
     Indication: Infection prophylaxis
     Route: 048
     Dates: start: 20220310
  10. GLYCOSAMINOGLYCANS [Concomitant]
     Active Substance: GLYCOSAMINOGLYCANS
     Indication: Dry skin prophylaxis
     Dosage: TIME INTERVAL: AS NECESSARY: PROPER QUANTITY (UNIT:G)
     Route: 061
     Dates: start: 20220313
  11. GLYCOSAMINOGLYCANS [Concomitant]
     Active Substance: GLYCOSAMINOGLYCANS
     Indication: Dry skin prophylaxis
     Dosage: TIME INTERVAL: AS NECESSARY: PROPER QUANTITY
     Route: 061
     Dates: start: 20220322
  12. BETAMETHASONE DIPROPIONATE [Concomitant]
     Active Substance: BETAMETHASONE DIPROPIONATE
     Indication: Eczema
     Dosage: TIME INTERVAL: AS NECESSARY: PROPER QUANTITY
     Route: 061
     Dates: start: 20220322
  13. GENTAMICIN SULFATE [Concomitant]
     Active Substance: GENTAMICIN SULFATE
     Indication: Skin infection
     Dosage: TIME INTERVAL: AS NECESSARY: PROPER QUANTITY (UNIT;G)
     Route: 061
     Dates: start: 20220502
  14. CLOBETASOL [Concomitant]
     Active Substance: CLOBETASOL
     Indication: Skin infection
     Dosage: TIME INTERVAL: AS NECESSARY: PROPER QUANTITY (UNIT:G)
     Route: 061
     Dates: start: 20220506
  15. LEVOFLOXACIN [Concomitant]
     Active Substance: LEVOFLOXACIN
     Indication: Skin infection
     Route: 048
     Dates: start: 20220507
  16. BISOPROLOL FUMARATE [Concomitant]
     Active Substance: BISOPROLOL FUMARATE
     Indication: Hypertension
     Route: 048
     Dates: start: 2004
  17. ESZOPICLONE [Concomitant]
     Active Substance: ESZOPICLONE
     Indication: Insomnia
     Dosage: TIME INTERVAL: AS NECESSARY
     Route: 048
     Dates: start: 20220326
  18. AZ COMBINATION [Concomitant]
     Indication: Infection prophylaxis
     Dosage: TIME INTERVAL: AS NECESSARY: PROPER QUANTITY (UNIT:G)?FINE GRANULES FOR GARGLE
     Dates: start: 20220311
  19. VONOPRAZAN FUMARATE [Concomitant]
     Active Substance: VONOPRAZAN FUMARATE
     Indication: Gastrooesophageal reflux disease
     Route: 048
     Dates: start: 2020
  20. DEQUALINIUM CHLORIDE [Concomitant]
     Active Substance: DEQUALINIUM CHLORIDE
     Indication: Infection prophylaxis
     Dosage: TIME INTERVAL: AS NECESSARY
     Route: 048
     Dates: start: 20221023

REACTIONS (1)
  - Renal abscess [Not Recovered/Not Resolved]

NARRATIVE: CASE EVENT DATE: 20221107
